FAERS Safety Report 4708980-1 (Version None)
Quarter: 2005Q3

REPORT INFORMATION
  Report Type: 
  Country: None (occurrence: None)
  Receive Date: 20050707
  Receipt Date: 20050623
  Transmission Date: 20060218
  Serious: Yes (Hospitalization, Other)
  Sender: FDA-Public Use
  Company Number: 2004093935

PATIENT
  Age: 72 Year
  Sex: Female
  Weight: 53.0709 kg

DRUGS (15)
  1. BEXTRA [Suspect]
     Indication: FIBROMYALGIA
     Dosage: (10 MG), ORAL
     Route: 048
     Dates: start: 20041001
  2. GABAPENTIN [Concomitant]
  3. VICODIN [Concomitant]
  4. ACETAMINOPHEN [Concomitant]
  5. TOCOPHEROL (TOCOPEROL) [Concomitant]
  6. THERAGRAN (VITAMINS NOS) [Concomitant]
  7. BELLADENAL (BELLADONNA EXTRACT, PHENOBARBITAL) [Concomitant]
  8. ESTROGENS CONJUGATED (ESTROGENS CONJUGATE) [Concomitant]
  9. LEVOTHYROXINE SODIUM [Concomitant]
  10. ALPRAZOLAM [Concomitant]
  11. CHLORDIAZEPOXIDE W/AMITRIPTYLINE) [Concomitant]
  12. ESTAZOLAM [Concomitant]
  13. DONNATAL 9ATROPINE SULFATE, HYOSCINE HYDROBROMIDE, HYOSCYAMINE SULFATE [Concomitant]
  14. BIOTIN [Concomitant]
  15. ESTAZOLAM [Concomitant]

REACTIONS (9)
  - ABASIA [None]
  - BURNING SENSATION [None]
  - CYST [None]
  - DRY SKIN [None]
  - HIP FRACTURE [None]
  - INADEQUATE ANALGESIA [None]
  - INSOMNIA [None]
  - RASH ERYTHEMATOUS [None]
  - STRESS [None]
